FAERS Safety Report 23162571 (Version 7)
Quarter: 2024Q3

REPORT INFORMATION
  Report Type: Spontaneous
  Country: DE (occurrence: DE)
  Receive Date: 20231109
  Receipt Date: 20240911
  Transmission Date: 20241017
  Serious: Yes (Other)
  Sender: AUROBINDO
  Company Number: DE-ROCHE-3421337

PATIENT
  Age: 60 Year
  Sex: Female
  Weight: 50.4 kg

DRUGS (35)
  1. CARBOPLATIN [Suspect]
     Active Substance: CARBOPLATIN
     Indication: Breast cancer
     Dosage: 640 MILLIGRAM
     Route: 065
     Dates: start: 20230817, end: 20230817
  2. CARBOPLATIN [Suspect]
     Active Substance: CARBOPLATIN
     Dosage: 690 MILLIGRAM
     Route: 065
     Dates: start: 20230907
  3. CARBOPLATIN [Suspect]
     Active Substance: CARBOPLATIN
     Dosage: 638 MILLIGRAM
     Route: 065
     Dates: start: 20230817
  4. DOCETAXEL [Suspect]
     Active Substance: DOCETAXEL\DOCETAXEL ANHYDROUS
     Indication: Breast cancer
     Dosage: 116 MILLIGRAM
     Route: 065
     Dates: start: 20230817, end: 20230817
  5. DOCETAXEL [Suspect]
     Active Substance: DOCETAXEL\DOCETAXEL ANHYDROUS
     Dosage: 118 MILLIGRAM
     Route: 065
     Dates: start: 20230928
  6. PERJETA [Suspect]
     Active Substance: PERTUZUMAB
     Indication: Breast cancer
     Dosage: 840 MILLIGRAM
     Route: 065
     Dates: start: 20230817
  7. PERJETA [Suspect]
     Active Substance: PERTUZUMAB
     Dosage: 420 MILLIGRAM
     Route: 065
     Dates: start: 20230907
  8. PERJETA [Suspect]
     Active Substance: PERTUZUMAB
     Dosage: 420 MILLIGRAM
     Route: 065
     Dates: start: 20230928
  9. TRASTUZUMAB [Suspect]
     Active Substance: TRASTUZUMAB
     Indication: Breast cancer
     Dosage: 399 MILLIGRAM
     Route: 065
     Dates: start: 20230817, end: 20230817
  10. TRASTUZUMAB [Suspect]
     Active Substance: TRASTUZUMAB
     Dosage: 315 MILLIGRAM
     Route: 065
     Dates: start: 20230928
  11. ALLIUM CEPA [Concomitant]
     Active Substance: ONION
     Indication: Product used for unknown indication
     Dosage: UNK (5 GLOBULES, 0.33 DAY)
     Route: 065
     Dates: start: 20230908, end: 20231214
  12. ALLIUM CEPA [Concomitant]
     Active Substance: ONION
     Dosage: UNK (5 GLOBULES, 0.33 DAY)
     Route: 048
     Dates: start: 20230908, end: 20231214
  13. AKYNZEO [Concomitant]
     Indication: Product used for unknown indication
     Dosage: 300 MILLIGRAM
     Route: 065
     Dates: start: 20230817, end: 20231130
  14. Bepanthen [Concomitant]
     Indication: Product used for unknown indication
     Dosage: UNK, ONCE A DAY (DOSE: 1 CM)
     Route: 065
     Dates: start: 20230908, end: 20240205
  15. Bepanthen [Concomitant]
     Dosage: UNK, ONCE A DAY (DOSE: 1 CM)
     Route: 045
     Dates: start: 20230908, end: 20240205
  16. ENOXAPARIN SODIUM [Concomitant]
     Active Substance: ENOXAPARIN SODIUM
     Indication: Product used for unknown indication
     Dosage: 400 INTERNATIONAL UNIT, ONCE A DAY
     Route: 065
     Dates: start: 20230817, end: 20230826
  17. DEXAMETHASONE [Concomitant]
     Active Substance: DEXAMETHASONE
     Indication: Product used for unknown indication
     Dosage: 8 MILLIGRAM
     Route: 065
     Dates: start: 20230817, end: 20231130
  18. DEXAMETHASONE [Concomitant]
     Active Substance: DEXAMETHASONE
     Dosage: UNK
     Route: 065
     Dates: start: 20230818, end: 20231201
  19. DEXAMETHASONE [Concomitant]
     Active Substance: DEXAMETHASONE
     Dosage: 8 MILLIGRAM
     Route: 065
     Dates: start: 20230819, end: 20231202
  20. DEXAMETHASONE [Concomitant]
     Active Substance: DEXAMETHASONE
     Dosage: 16 MILLIGRAM
     Route: 065
     Dates: start: 20230906, end: 20231126
  21. DEXAMETHASONE [Concomitant]
     Active Substance: DEXAMETHASONE
     Dosage: 8 MILLIGRAM
     Route: 065
     Dates: start: 20230817, end: 20231130
  22. Hametum [Concomitant]
     Indication: Product used for unknown indication
     Dosage: UNK, 0.5 DAY (0.5 CM)
     Route: 065
     Dates: start: 20231020
  23. DIMETHINDENE MALEATE [Concomitant]
     Active Substance: DIMETHINDENE MALEATE
     Indication: Product used for unknown indication
     Dosage: 4 MILLIGRAM
     Route: 065
     Dates: start: 20230817, end: 20231130
  24. Hysan [Concomitant]
     Indication: Product used for unknown indication
     Dosage: UNK (DOSE: 1 HUB, 0.33 DAY)
     Route: 065
     Dates: start: 20230908
  25. LOPERAMIDE [Concomitant]
     Active Substance: LOPERAMIDE
     Indication: Product used for unknown indication
     Dosage: 2 MILLIGRAM
     Route: 065
     Dates: start: 20230821, end: 20230827
  26. LOPERAMIDE [Concomitant]
     Active Substance: LOPERAMIDE
     Dosage: 4 MILLIGRAM
     Route: 065
     Dates: start: 20230910, end: 20230929
  27. LOPERAMIDE [Concomitant]
     Active Substance: LOPERAMIDE
     Dosage: 4 MILLIGRAM
     Route: 065
     Dates: start: 20231001
  28. MCP [Concomitant]
     Active Substance: METOCLOPRAMIDE HYDROCHLORIDE
     Indication: Product used for unknown indication
     Dosage: 10 MILLIGRAM, ONCE A DAY
     Route: 065
     Dates: start: 20231007, end: 20231007
  29. MCP [Concomitant]
     Active Substance: METOCLOPRAMIDE HYDROCHLORIDE
     Dosage: 10 MILLIGRAM, ONCE A DAY
     Route: 065
     Dates: start: 20231116, end: 20231122
  30. NEULASTA [Concomitant]
     Active Substance: PEGFILGRASTIM
     Indication: Product used for unknown indication
     Dosage: 6 MILLIGRAM
     Route: 065
     Dates: start: 20230818, end: 20231201
  31. NEULASTA [Concomitant]
     Active Substance: PEGFILGRASTIM
     Dosage: 6 MILLIGRAM
     Route: 065
     Dates: start: 20230818, end: 20230929
  32. NEULASTA [Concomitant]
     Active Substance: PEGFILGRASTIM
     Dosage: 6 MILLIGRAM
     Route: 065
     Dates: start: 20231020, end: 20231120
  33. NEULASTA [Concomitant]
     Active Substance: PEGFILGRASTIM
     Dosage: 6 MILLIGRAM, DAILY
     Route: 058
     Dates: start: 20231110, end: 20231201
  34. VITAMIN D3 [Concomitant]
     Active Substance: CHOLECALCIFEROL
     Indication: Product used for unknown indication
     Dosage: 2850 INTERNATIONAL UNIT, EVERY WEEK
     Route: 065
     Dates: start: 20230908, end: 20240205
  35. VITAMIN D3 [Concomitant]
     Active Substance: CHOLECALCIFEROL
     Dosage: 1420 INTERNATIONAL UNIT, ONCE A DAY
     Route: 065
     Dates: start: 20240206

REACTIONS (19)
  - Polyneuropathy [Recovered/Resolved]
  - Dysgeusia [Recovering/Resolving]
  - Asthenia [Recovered/Resolved]
  - Flushing [Recovered/Resolved]
  - Oedema peripheral [Recovered/Resolved]
  - Dyspepsia [Recovered/Resolved]
  - Decreased appetite [Recovered/Resolved]
  - Diarrhoea [Recovered/Resolved]
  - Dry skin [Recovered/Resolved]
  - Epistaxis [Recovered/Resolved]
  - Alopecia [Recovered/Resolved]
  - Rash [Recovered/Resolved]
  - Nausea [Recovered/Resolved]
  - Vomiting [Recovered/Resolved]
  - Anal haemorrhage [Recovered/Resolved]
  - Nail disorder [Recovered/Resolved]
  - Nail discolouration [Recovered/Resolved]
  - Pain in extremity [Recovered/Resolved]
  - Illness [Recovered/Resolved]

NARRATIVE: CASE EVENT DATE: 20230818
